FAERS Safety Report 7601865-2 (Version None)
Quarter: 2011Q3

REPORT INFORMATION
  Report Type: 
  Country: None (occurrence: None)
  Receive Date: 20110711
  Receipt Date: 20110603
  Transmission Date: 20111222
  Serious: No
  Sender: FDA-Public Use
  Company Number: US-BAYER-2011-048705

PATIENT
  Age: 82 Year
  Sex: Male
  Weight: 92.063 kg

DRUGS (5)
  1. CARVEDILOL [Concomitant]
  2. DICLOFENAC [Concomitant]
  3. ALEVE (CAPLET) [Suspect]
     Indication: ARTHRITIS
     Dosage: 1 DF, BID, BOTTLE COUNT 24S
     Route: 048
     Dates: start: 20110601
  4. PROSCAR [Concomitant]
  5. FENOFIBRATE [Concomitant]

REACTIONS (1)
  - ARTHRITIS [None]
